FAERS Safety Report 9884405 (Version 2)
Quarter: 2014Q1

REPORT INFORMATION
  Report Type: Report from Study
  Country: KR (occurrence: KR)
  Receive Date: 20140210
  Receipt Date: 20140214
  Transmission Date: 20141002
  Serious: Yes (Hospitalization)
  Sender: FDA-Public Use
  Company Number: KR-ASTELLAS-2014JP000926

PATIENT
  Age: 52 Year
  Sex: Female
  Weight: 59 kg

DRUGS (5)
  1. TACROLIMUS MR4 CAPSULES [Suspect]
     Indication: RENAL TRANSPLANT
     Dosage: 4 MG, UID/QD
     Route: 048
     Dates: start: 20131211, end: 20140127
  2. TACROLIMUS MR4 CAPSULES [Suspect]
     Dosage: 5 MG, UNKNOWN/D
     Route: 048
     Dates: start: 20140128
  3. SIROLIMUS [Concomitant]
     Dosage: 2 MG, UID/QD
     Route: 048
     Dates: start: 20131211, end: 20140127
  4. METHYLPREDNISOLONE [Concomitant]
     Dosage: 4 MG, UID/QD
     Route: 048
     Dates: start: 20131117
  5. ATORVASTATIN [Concomitant]
     Dosage: 10 MG, UID/QD
     Route: 048
     Dates: start: 20130312

REACTIONS (1)
  - Atypical pneumonia [Recovered/Resolved]
